FAERS Safety Report 24365420 (Version 1)
Quarter: 2024Q3

REPORT INFORMATION
  Report Type: Spontaneous
  Country: FR (occurrence: FR)
  Receive Date: 20240926
  Receipt Date: 20240926
  Transmission Date: 20241016
  Serious: Yes (Hospitalization, Other)
  Sender: CELLTRION
  Company Number: None

PATIENT

DRUGS (13)
  1. RITUXIMAB [Suspect]
     Active Substance: RITUXIMAB
     Indication: Central nervous system lymphoma
     Dosage: 660 MG, EVERY 1 DAY
     Route: 042
     Dates: start: 20231206, end: 20231206
  2. RITUXIMAB [Suspect]
     Active Substance: RITUXIMAB
     Dosage: 660 MG, EVERY 1 DAY
     Route: 042
     Dates: start: 20231213, end: 20231213
  3. RITUXIMAB [Suspect]
     Active Substance: RITUXIMAB
     Dosage: 660 MG, EVERY 1 DAY
     Route: 042
     Dates: start: 20231220, end: 20231220
  4. RITUXIMAB [Suspect]
     Active Substance: RITUXIMAB
     Dosage: 660 MG, EVERY 1 DAY
     Route: 042
     Dates: start: 20231129, end: 20231129
  5. RITUXIMAB [Suspect]
     Active Substance: RITUXIMAB
     Dosage: 660 MG, EVERY 1 DAY
     Route: 042
     Dates: start: 20231227, end: 20231227
  6. RITUXIMAB [Suspect]
     Active Substance: RITUXIMAB
     Dosage: 660 MG, EVERY 1 DAY
     Route: 042
     Dates: start: 20240202, end: 20240202
  7. IBRUTINIB [Suspect]
     Active Substance: IBRUTINIB
     Indication: Central nervous system lymphoma
     Dosage: 420 MG, EVERY 1 DAY
     Route: 048
     Dates: start: 20231227, end: 20240126
  8. IBRUTINIB [Suspect]
     Active Substance: IBRUTINIB
     Dosage: 560 MG, EVERY 1 DAY
     Route: 048
     Dates: start: 20240202, end: 20240222
  9. IBRUTINIB [Suspect]
     Active Substance: IBRUTINIB
     Dosage: 560 MG, EVERY 1 DAY
     Route: 048
     Dates: start: 20231129, end: 20231227
  10. FUROSEMIDE [Suspect]
     Active Substance: FUROSEMIDE
     Indication: Oedema peripheral
     Dosage: 20 MG, EVERY 1 DAY
     Route: 048
     Dates: start: 20240123, end: 20240130
  11. LENALIDOMIDE [Suspect]
     Active Substance: LENALIDOMIDE
     Indication: Central nervous system lymphoma
     Dosage: 25 MG, EVERY 1 DAY
     Route: 048
     Dates: start: 20231227, end: 20240117
  12. LENALIDOMIDE [Suspect]
     Active Substance: LENALIDOMIDE
     Dosage: 20 MG, EVERY 1 DAY
     Route: 048
     Dates: start: 20231129, end: 20231218
  13. LENALIDOMIDE [Suspect]
     Active Substance: LENALIDOMIDE
     Dosage: 25 MG, EVERY 1 DAY
     Route: 048
     Dates: start: 20240202, end: 20240222

REACTIONS (1)
  - Drug reaction with eosinophilia and systemic symptoms [Recovering/Resolving]

NARRATIVE: CASE EVENT DATE: 20240222
